FAERS Safety Report 8668195 (Version 2)
Quarter: 2012Q4

REPORT INFORMATION
  Report Type: 
  Country: DE (occurrence: DE)
  Receive Date: 20120717
  Receipt Date: 20121106
  Transmission Date: 20130627
  Serious: Yes (Hospitalization)
  Sender: FDA-Public Use
  Company Number: DE-B.I. PHARMACEUTICALS,INC./RIDGEFIELD-2012-DE-01638DE

PATIENT
  Age: 75 Year
  Sex: Male
  Weight: 104 kg

DRUGS (4)
  1. PRADAXA [Suspect]
     Indication: ATRIAL FIBRILLATION
     Dosage: 220 mg
     Route: 048
     Dates: start: 201204, end: 20120524
  2. SILYMARIN [Concomitant]
     Dosage: 412 mg
     Route: 048
  3. ASS [Concomitant]
     Dosage: 100 mg
     Route: 048
  4. VALSARTAN [Concomitant]
     Dosage: 212 mg
     Route: 048

REACTIONS (1)
  - Pancytopenia [Recovered/Resolved]
